FAERS Safety Report 5953197-6 (Version None)
Quarter: 2008Q4

REPORT INFORMATION
  Report Type: 
  Country: None (occurrence: None)
  Receive Date: 20081031
  Receipt Date: 20080305
  Transmission Date: 20090506
  Serious: Yes (Other)
  Sender: FDA-Public Use
  Company Number: HQWYE404020MAR06

PATIENT
  Age: 63 Year
  Sex: Female

DRUGS (4)
  1. PREMARIN [Suspect]
     Indication: VULVOVAGINAL DRYNESS
     Dosage: 3 TIMES A WEEK, DOSAGE UNSPECIFIED, VAGINAL
     Route: 067
     Dates: start: 20050801
  2. DYAZIDE [Concomitant]
  3. PREMARIN [Concomitant]
  4. ASPIRIN [Concomitant]

REACTIONS (4)
  - APPLICATION SITE PRURITUS [None]
  - EUPHORIC MOOD [None]
  - HEADACHE [None]
  - PRURITUS GENERALISED [None]
